FAERS Safety Report 20207979 (Version 3)
Quarter: 2022Q2

REPORT INFORMATION
  Report Type: Spontaneous
  Country: IN (occurrence: IN)
  Receive Date: 20211220
  Receipt Date: 20220414
  Transmission Date: 20220721
  Serious: Yes (Other)
  Sender: FDA-Public Use
  Company Number: IN-PFIZER INC-2021842410

PATIENT
  Age: 59 Year
  Sex: Female

DRUGS (5)
  1. PALBOCICLIB [Suspect]
     Active Substance: PALBOCICLIB
     Indication: Breast cancer metastatic
     Dosage: FROM D1-21 Q28
     Route: 048
     Dates: start: 20210614, end: 202111
  2. PALBOCICLIB [Suspect]
     Active Substance: PALBOCICLIB
     Dosage: 125 MG, 1X/DAY
     Route: 048
     Dates: start: 20210614
  3. LETROZOLE [Concomitant]
     Active Substance: LETROZOLE
     Dosage: 2.5 MG, 1X/DAY
  4. CALCIUM CARBONATE\CHOLECALCIFEROL [Concomitant]
     Active Substance: CALCIUM CARBONATE\CHOLECALCIFEROL
     Dosage: UNK, 1X/DAY
  5. ULTRACET [Concomitant]
     Active Substance: ACETAMINOPHEN\TRAMADOL HYDROCHLORIDE
     Dosage: UNK, AS NEEDED MAX 3 TABS/DAY

REACTIONS (8)
  - Neuropathy peripheral [Unknown]
  - Asthenia [Unknown]
  - Nausea [Unknown]
  - Pain [Unknown]
  - Neoplasm progression [Unknown]
  - Bone pain [Unknown]
  - Myalgia [Unknown]
  - Dyspepsia [Unknown]
